FAERS Safety Report 15154611 (Version 3)
Quarter: 2018Q3

REPORT INFORMATION
  Report Type: Spontaneous
  Country: US (occurrence: US)
  Receive Date: 20180717
  Receipt Date: 20180722
  Transmission Date: 20181010
  Serious: Yes (Other)
  Sender: FDA-Public Use
  Company Number: US-BRISTOL-MYERS SQUIBB COMPANY-BMS-2018-061296

PATIENT
  Sex: Male
  Weight: 96.15 kg

DRUGS (8)
  1. ELIQUIS [Suspect]
     Active Substance: APIXABAN
     Indication: DEEP VEIN THROMBOSIS
     Dosage: 10 MG, BID
     Route: 048
     Dates: start: 201805
  2. CLONAZEPAM. [Concomitant]
     Active Substance: CLONAZEPAM
     Indication: PRODUCT USED FOR UNKNOWN INDICATION
     Dosage: 1 MG, UNK
     Route: 065
  3. PANTOPRAZOLE [Concomitant]
     Active Substance: PANTOPRAZOLE
     Indication: PRODUCT USED FOR UNKNOWN INDICATION
     Route: 065
  4. DICLOFENAC [Concomitant]
     Active Substance: DICLOFENAC
     Indication: PRODUCT USED FOR UNKNOWN INDICATION
     Route: 065
  5. METOPROLOL. [Concomitant]
     Active Substance: METOPROLOL
     Indication: PRODUCT USED FOR UNKNOWN INDICATION
     Route: 065
  6. ELIQUIS [Suspect]
     Active Substance: APIXABAN
     Indication: PRODUCT USED FOR UNKNOWN INDICATION
     Dosage: 5 MG, BID
     Route: 048
     Dates: start: 20180525, end: 20180628
  7. XANAX [Concomitant]
     Active Substance: ALPRAZOLAM
     Indication: PANIC ATTACK
     Route: 065
  8. TEMAZEPAM. [Concomitant]
     Active Substance: TEMAZEPAM
     Indication: PRODUCT USED FOR UNKNOWN INDICATION
     Route: 065

REACTIONS (19)
  - Feeling hot [Recovered/Resolved]
  - Asthenia [Unknown]
  - Blood urine present [Unknown]
  - Lethargy [Unknown]
  - Feeling abnormal [Unknown]
  - Visual impairment [Unknown]
  - Haematochezia [Unknown]
  - Thrombosis [Unknown]
  - Fatigue [Unknown]
  - Abdominal distension [Unknown]
  - Prescribed underdose [Unknown]
  - Flatulence [Unknown]
  - Gingival bleeding [Not Recovered/Not Resolved]
  - Headache [Recovered/Resolved]
  - Hypoaesthesia oral [Unknown]
  - Faeces discoloured [Unknown]
  - Feeling cold [Unknown]
  - Arthralgia [Unknown]
  - Sleep disorder [Unknown]
